FAERS Safety Report 9963708 (Version 1)
Quarter: 2014Q1

REPORT INFORMATION
  Report Type: Spontaneous
  Country: US (occurrence: US)
  Receive Date: 20140305
  Receipt Date: 20140305
  Transmission Date: 20141002
  Serious: No
  Sender: FDA-Public Use
  Company Number: US-ABBVIE-13P-163-1117018-00

PATIENT
  Age: 54 Year
  Sex: Female
  Weight: 72.64 kg

DRUGS (8)
  1. HUMIRA [Suspect]
     Indication: HIDRADENITIS
     Route: 058
     Dates: start: 201201
  2. HUMIRA [Suspect]
     Indication: ECZEMA
  3. SYNTHROID [Concomitant]
     Indication: HYPOTHYROIDISM
  4. LEVSIN [Concomitant]
     Indication: IRRITABLE BOWEL SYNDROME
  5. NORVASC [Concomitant]
     Indication: HYPERTENSION
  6. LISINOPRIL [Concomitant]
     Indication: HYPERTENSION
  7. SINGULAIR [Concomitant]
     Indication: SEASONAL ALLERGY
  8. QVAR [Concomitant]
     Indication: ASTHMA

REACTIONS (2)
  - Incorrect dose administered [Recovered/Resolved]
  - Injection site haemorrhage [Recovered/Resolved]
